FAERS Safety Report 6103159-3 (Version None)
Quarter: 2009Q1

REPORT INFORMATION
  Report Type: 
  Country: None (occurrence: None)
  Receive Date: 20090305
  Receipt Date: 20090302
  Transmission Date: 20090719
  Serious: Yes (Hospitalization)
  Sender: FDA-Public Use
  Company Number: CH-PFIZER INC-2009177083

PATIENT

DRUGS (9)
  1. DIFLUCAN [Suspect]
     Indication: CYSTITIS
     Route: 048
     Dates: start: 20080601, end: 20081015
  2. CIPROFLOXACIN HCL [Suspect]
     Indication: URINARY TRACT INFECTION
     Route: 048
     Dates: start: 20081007, end: 20081015
  3. SANDIMMUNE [Suspect]
     Route: 048
     Dates: end: 20081001
  4. CELLCEPT [Suspect]
     Indication: RENAL TRANSPLANT
     Dosage: 750 MG, 2X/DAY
     Route: 048
     Dates: start: 20000101, end: 20081015
  5. MARCUMAR [Concomitant]
     Route: 048
  6. SORTIS [Concomitant]
     Route: 048
  7. NEXIUM [Concomitant]
     Route: 048
  8. SPIRIVA [Concomitant]
     Route: 045
  9. AXOTIDE [Concomitant]
     Route: 045

REACTIONS (2)
  - AGRANULOCYTOSIS [None]
  - ASPERGILLOSIS [None]
